FAERS Safety Report 16264022 (Version 1)
Quarter: 2019Q2

REPORT INFORMATION
  Report Type: Spontaneous
  Country: US (occurrence: US)
  Receive Date: 20190327
  Receipt Date: 20190327
  Transmission Date: 20190711
  Serious: Yes (Hospitalization)
  Sender: FDA-Public Use
  Company Number: None

PATIENT
  Age: 88 Year
  Sex: Female

DRUGS (18)
  1. ATENOLOL. [Suspect]
     Active Substance: ATENOLOL
  2. ENBREL [Suspect]
     Active Substance: ETANERCEPT
     Indication: RHEUMATOID ARTHRITIS
     Route: 058
     Dates: start: 20140528
  3. HYDRALAZINE [Suspect]
     Active Substance: HYDRALAZINE HYDROCHLORIDE
  4. POT CL MICRO [Concomitant]
  5. FOLIC ACID. [Suspect]
     Active Substance: FOLIC ACID
  6. AMLODIPINE [Concomitant]
     Active Substance: AMLODIPINE BESYLATE
  7. METHOTREXATE. [Concomitant]
     Active Substance: METHOTREXATE
  8. CIPROFLOXACN [Suspect]
     Active Substance: CIPROFLOXACIN
  9. DONEPEZIL. [Suspect]
     Active Substance: DONEPEZIL
  10. DULOXETINE. [Suspect]
     Active Substance: DULOXETINE
  11. LINZESS [Concomitant]
     Active Substance: LINACLOTIDE
  12. MUPIROOCIN [Concomitant]
  13. PANTOPRAZOLE [Concomitant]
     Active Substance: PANTOPRAZOLE
  14. LOSARTAN. [Concomitant]
     Active Substance: LOSARTAN
  15. ROSUVASTATIN. [Concomitant]
     Active Substance: ROSUVASTATIN
  16. MEMANTINE. [Concomitant]
     Active Substance: MEMANTINE
  17. METGRONIDAZOL [Concomitant]
  18. CREON [Suspect]
     Active Substance: PANCRELIPASE AMYLASE\PANCRELIPASE LIPASE\PANCRELIPASE PROTEASE

REACTIONS (1)
  - Pancreatitis [None]

NARRATIVE: CASE EVENT DATE: 20190314
